FAERS Safety Report 9758610 (Version 1)
Quarter: 2013Q4

REPORT INFORMATION
  Report Type: Spontaneous
  Country: US (occurrence: None)
  Receive Date: 20131216
  Receipt Date: 20131216
  Transmission Date: 20140711
  Serious: Yes (Other)
  Sender: FDA-Public Use
  Company Number: RB-50286-2013

PATIENT
  Age: 18 Year
  Sex: Female
  Weight: 61 kg

DRUGS (1)
  1. SUBOXONE 8 MG [Suspect]
     Indication: DRUG DEPENDENCE
     Dosage: (SUBOXONE FILM; PRESCRIBED 5 X 8 MG FILM, UNKNOWN THE DOSAGE TAKEN INTRAVENOUS (NOT OTHERWISE SPECIF

REACTIONS (2)
  - Intentional drug misuse [None]
  - Intentional overdose [None]
